FAERS Safety Report 4274430-5 (Version None)
Quarter: 2004Q1

REPORT INFORMATION
  Report Type: 
  Country: None (occurrence: None)
  Receive Date: 20040120
  Receipt Date: 20021213
  Transmission Date: 20041129
  Serious: No
  Sender: FDA-Public Use
  Company Number: US-BRISTOL-MYERS SQUIBB COMPANY-12136602

PATIENT
  Age: 56 Year
  Sex: Female
  Weight: 37 kg

DRUGS (5)
  1. IFEX [Suspect]
     Indication: LIPOSARCOMA
     Dosage: DOSAGE: 2.5 GRAMS/M2 DAILY. PT WAS SUPPOSED TO GET IFEX FOR 3 DAYS EVERY 4 WKS X 3 CYCLES
     Route: 042
     Dates: start: 20021210, end: 20021211
  2. ADRIAMYCIN PFS [Concomitant]
  3. DTIC-DOME [Concomitant]
  4. ANZEMET [Concomitant]
  5. DEXAMETHASONE ACETATE [Concomitant]

REACTIONS (1)
  - CONFUSIONAL STATE [None]
